FAERS Safety Report 14113447 (Version 1)
Quarter: 2017Q4

REPORT INFORMATION
  Report Type: Spontaneous
  Country: US (occurrence: US)
  Receive Date: 20171023
  Receipt Date: 20171023
  Transmission Date: 20180321
  Serious: No
  Sender: FDA-Public Use
  Company Number: US-TEVA-798500ACC

PATIENT
  Sex: Female

DRUGS (9)
  1. THIOTHIAMINE [Concomitant]
  2. TIZANIDINE. [Concomitant]
     Active Substance: TIZANIDINE
     Dosage: AT NIGHT
  3. ALPRAZOLAM. [Concomitant]
     Active Substance: ALPRAZOLAM
  4. OXYCODONE AND ACETAMINOPHEN [Suspect]
     Active Substance: ACETAMINOPHEN\OXYCODONE HYDROCHLORIDE
     Indication: BACK INJURY
     Dosage: 10 MG OXYCODONE AND 325 MG ACETAMINOPHEN
  5. ATENOLOL. [Concomitant]
     Active Substance: ATENOLOL
  6. SOMA [Concomitant]
     Active Substance: CARISOPRODOL
  7. OMEPRAZOLE. [Concomitant]
     Active Substance: OMEPRAZOLE
  8. OXYCONTIN [Concomitant]
     Active Substance: OXYCODONE HYDROCHLORIDE
  9. ZOFRAN [Concomitant]
     Active Substance: ONDANSETRON HYDROCHLORIDE
     Indication: NAUSEA

REACTIONS (3)
  - Drug dispensing error [Unknown]
  - Intentional product use issue [Unknown]
  - Drug ineffective [Unknown]
